FAERS Safety Report 5379046-5 (Version None)
Quarter: 2007Q3

REPORT INFORMATION
  Report Type: 
  Country: None (occurrence: None)
  Receive Date: 20070705
  Receipt Date: 20070622
  Transmission Date: 20080115
  Serious: Yes (Life-Threatening, Hospitalization)
  Sender: FDA-Public Use
  Company Number: GB-ROCHE-503525

PATIENT
  Age: 72 Year
  Sex: Male

DRUGS (2)
  1. CAPECITABINE [Suspect]
     Dosage: DIVIDED INTO TWO DAILY DOSES, GIVEN FROM DAYS ONE TO FOURTEEN OF EACH THREE-WEEK-CYCLE.
     Route: 048
     Dates: start: 20070315
  2. BEVACIZUMAB [Suspect]
     Route: 042
     Dates: start: 20070315

REACTIONS (1)
  - INTESTINAL PERFORATION [None]
